FAERS Safety Report 6538290-1 (Version None)
Quarter: 2010Q1

REPORT INFORMATION
  Report Type: 
  Country: None (occurrence: None)
  Receive Date: 20100114
  Receipt Date: 20100104
  Transmission Date: 20100710
  Serious: No
  Sender: FDA-Public Use
  Company Number: US-B.I. PHARMACEUTICALS,INC./RIDGEFIELD-2010-BP-00179BP

PATIENT
  Age: 47 Year
  Sex: Male

DRUGS (4)
  1. VIRAMUNE [Suspect]
     Indication: ACQUIRED IMMUNODEFICIENCY SYNDROME
  2. TRUVADA [Concomitant]
     Indication: HIV TEST
  3. ZOLOFT [Concomitant]
  4. LAMICTAL [Concomitant]

REACTIONS (2)
  - DEPRESSION [None]
  - FATIGUE [None]
